FAERS Safety Report 21741226 (Version 15)
Quarter: 2024Q2

REPORT INFORMATION
  Report Type: Spontaneous
  Country: US (occurrence: US)
  Receive Date: 20221216
  Receipt Date: 20240611
  Transmission Date: 20240716
  Serious: No
  Sender: FDA-Public Use
  Company Number: US-PFIZER INC-PV202200124950

PATIENT
  Age: 67 Year
  Sex: Female

DRUGS (2)
  1. BOSULIF [Suspect]
     Active Substance: BOSUTINIB MONOHYDRATE
     Indication: Philadelphia positive chronic myeloid leukaemia
     Dosage: BOSULIF 100MG TIMES 2
  2. BOSULIF [Suspect]
     Active Substance: BOSUTINIB MONOHYDRATE
     Dosage: 2 PO(PER ORAL) QD(ONCE DAILY) (200 MG DOSE)
     Route: 048

REACTIONS (2)
  - Liver disorder [Unknown]
  - Malaise [Unknown]
